FAERS Safety Report 14283753 (Version 1)
Quarter: 2017Q4

REPORT INFORMATION
  Report Type: Spontaneous
  Country: TR (occurrence: TR)
  Receive Date: 20171214
  Receipt Date: 20171214
  Transmission Date: 20180321
  Serious: Yes (Other)
  Sender: FDA-Public Use
  Company Number: TR-BAYER-2017-235682

PATIENT
  Age: 20 Year
  Sex: Female
  Weight: 44 kg

DRUGS (1)
  1. QLAIRISTA [Suspect]
     Active Substance: DIENOGEST\ESTRADIOL VALERATE
     Indication: OVARIAN CYST
     Dosage: UNK
     Route: 048
     Dates: start: 20171117

REACTIONS (3)
  - Dyspnoea [Not Recovered/Not Resolved]
  - Breast pain [Unknown]
  - Product use in unapproved indication [None]

NARRATIVE: CASE EVENT DATE: 20171123
